FAERS Safety Report 17982480 (Version 1)
Quarter: 2020Q3

REPORT INFORMATION
  Report Type: Spontaneous
  Country: US (occurrence: US)
  Receive Date: 20200702
  Receipt Date: 20200702
  Transmission Date: 20201103
  Serious: Yes (Hospitalization, Other)
  Sender: FDA-Public Use
  Company Number: None

PATIENT
  Age: 68 Year
  Sex: Female
  Weight: 76.95 kg

DRUGS (22)
  1. CHANTIX [Concomitant]
     Active Substance: VARENICLINE TARTRATE
  2. PROPRANOLOL [Concomitant]
     Active Substance: PROPRANOLOL HYDROCHLORIDE
  3. ATORVASTATIN [Concomitant]
     Active Substance: ATORVASTATIN
  4. NALOXONE [Concomitant]
     Active Substance: NALOXONE
  5. ALECENSA [Suspect]
     Active Substance: ALECTINIB HYDROCHLORIDE
     Indication: LUNG NEOPLASM MALIGNANT
     Route: 048
     Dates: start: 20200108
  6. NOVOLIN NOS [Concomitant]
     Active Substance: INSULIN HUMAN
  7. LOSARTAN. [Concomitant]
     Active Substance: LOSARTAN
  8. MIRTAZAPINE. [Concomitant]
     Active Substance: MIRTAZAPINE
  9. MONTELUKAST [Concomitant]
     Active Substance: MONTELUKAST SODIUM
  10. OMEPRAZOLE. [Concomitant]
     Active Substance: OMEPRAZOLE
  11. ONDANSETRON [Concomitant]
     Active Substance: ONDANSETRON
  12. ALBUTEROL. [Concomitant]
     Active Substance: ALBUTEROL
  13. ALPRAZOLAM. [Concomitant]
     Active Substance: ALPRAZOLAM
  14. BUSPIRONE [Concomitant]
     Active Substance: BUSPIRONE HYDROCHLORIDE
  15. ISOSORBIDE. [Concomitant]
     Active Substance: ISOSORBIDE
  16. HYDROCHLOROTHIAZIDE. [Concomitant]
     Active Substance: HYDROCHLOROTHIAZIDE
  17. LEVEMIR [Concomitant]
     Active Substance: INSULIN DETEMIR
  18. LORATADINE. [Concomitant]
     Active Substance: LORATADINE
  19. PROCHLORPERAZINE. [Concomitant]
     Active Substance: PROCHLORPERAZINE
  20. FAMOTIDINE. [Concomitant]
     Active Substance: FAMOTIDINE
  21. FOLIC ACID. [Concomitant]
     Active Substance: FOLIC ACID
  22. GABAPENTIN. [Concomitant]
     Active Substance: GABAPENTIN

REACTIONS (1)
  - Oxygen saturation decreased [None]
